FAERS Safety Report 13761020 (Version 2)
Quarter: 2017Q3

REPORT INFORMATION
  Report Type: Report from Study
  Country: IT (occurrence: IT)
  Receive Date: 20170717
  Receipt Date: 20170719
  Transmission Date: 20171127
  Serious: Yes (Death)
  Sender: FDA-Public Use
  Company Number: IT-CELGENEUS-ITA-20170701357

PATIENT

DRUGS (2)
  1. IMNOVID [Suspect]
     Active Substance: POMALIDOMIDE
     Indication: PRODUCT USED FOR UNKNOWN INDICATION
     Route: 048
     Dates: end: 20170131
  2. IMNOVID [Suspect]
     Active Substance: POMALIDOMIDE
     Indication: OFF LABEL USE

REACTIONS (1)
  - Disease progression [Fatal]
